FAERS Safety Report 20898370 (Version 1)
Quarter: 2022Q2

REPORT INFORMATION
  Report Type: Spontaneous
  Country: SD (occurrence: SD)
  Receive Date: 20220531
  Receipt Date: 20220531
  Transmission Date: 20220720
  Serious: Yes (Other)
  Sender: FDA-Public Use
  Company Number: SD-SUN PHARMACEUTICAL INDUSTRIES LTD-2022RR-338584

PATIENT
  Age: 78 Year
  Sex: Male

DRUGS (13)
  1. ACETAMINOPHEN [Suspect]
     Active Substance: ACETAMINOPHEN
     Indication: COVID-19
     Dosage: 1 GRAM, ON NEED
     Route: 042
  2. AZITHROMYCIN [Suspect]
     Active Substance: AZITHROMYCIN
     Indication: COVID-19
     Dosage: 500 MILLIGRAM, QD
     Route: 065
  3. MEROPENEM [Suspect]
     Active Substance: MEROPENEM
     Indication: COVID-19
     Dosage: 1 GRAM, BID
     Route: 042
  4. ENOXAPARIN SODIUM [Suspect]
     Active Substance: ENOXAPARIN SODIUM
     Indication: COVID-19
     Dosage: 40 MILLIGRAM, BID
     Route: 058
  5. DEXAMETHASONE [Suspect]
     Active Substance: DEXAMETHASONE
     Indication: COVID-19
     Dosage: 6 MILLIGRAM, QD
     Route: 042
  6. REMDESIVIR [Suspect]
     Active Substance: REMDESIVIR
     Indication: COVID-19
     Dosage: 200 MILLIGRAM, LOADING DOSE
     Route: 042
  7. REMDESIVIR [Suspect]
     Active Substance: REMDESIVIR
     Dosage: 100 MILLIGRAM, QD, MAINTENANCE DOSE
     Route: 042
  8. PANTOPRAZOLE [Concomitant]
     Active Substance: PANTOPRAZOLE
     Indication: COVID-19
     Dosage: 40 MILLIGRAM, QD
     Route: 042
  9. VITAMIN C [Concomitant]
     Active Substance: ASCORBIC ACID
     Indication: COVID-19
     Dosage: 1000 MILLIGRAM, QD
     Route: 065
  10. ZINC SULFATE [Concomitant]
     Active Substance: ZINC SULFATE
     Indication: COVID-19
     Dosage: 15 MILLIGRAM, QD
     Route: 065
  11. ALBUTEROL [Concomitant]
     Active Substance: ALBUTEROL
     Indication: COVID-19
     Dosage: UNK, QID, NEBULIZED SOLUTION
     Route: 065
  12. IPRATROPIUM [Concomitant]
     Active Substance: IPRATROPIUM
     Indication: COVID-19
     Dosage: UNK, QID, NEBULIZED SOLUTION
     Route: 065
  13. PULMICORT TURBUHALER [Concomitant]
     Active Substance: BUDESONIDE
     Indication: COVID-19
     Dosage: 0.5 GRAM, QID, NEBULIZED SOLUTION
     Route: 065

REACTIONS (2)
  - Hepatic enzyme increased [Unknown]
  - Off label use [Unknown]
